FAERS Safety Report 15600963 (Version 3)
Quarter: 2019Q2

REPORT INFORMATION
  Report Type: Spontaneous
  Country: US (occurrence: US)
  Receive Date: 20181109
  Receipt Date: 20190423
  Transmission Date: 20190711
  Serious: Yes (Death)
  Sender: FDA-Public Use
  Company Number: US-PFIZER INC-2018383100

PATIENT
  Age: 67 Year
  Sex: Male
  Weight: 85.99 kg

DRUGS (3)
  1. VFEND [Suspect]
     Active Substance: VORICONAZOLE
     Indication: ASPERGILLUS INFECTION
     Dosage: 300 MG, 2X/DAY (1.5 TABS EVERY 12 HOURS)/ (1.5 TABS)/(1 HOUR BEFORE OR AFTER EATING)
     Route: 048
     Dates: end: 20181104
  2. VFEND [Suspect]
     Active Substance: VORICONAZOLE
     Dosage: 300 MG, 2X/DAY (1.5 TABS)
     Dates: start: 20190117
  3. VFEND [Suspect]
     Active Substance: VORICONAZOLE
     Dosage: 300 MG, 2X/DAY (200MG TABLET , ONE AND A HALF TABLET EVERY TWELVE HOURS BY MOUTH)
     Route: 048
     Dates: start: 2018

REACTIONS (3)
  - Product use issue [Unknown]
  - Hepatic enzyme increased [Recovered/Resolved]
  - Death [Fatal]

NARRATIVE: CASE EVENT DATE: 20190409
